FAERS Safety Report 24141714 (Version 2)
Quarter: 2025Q1

REPORT INFORMATION
  Report Type: Spontaneous
  Country: US (occurrence: US)
  Receive Date: 20240726
  Receipt Date: 20250204
  Transmission Date: 20250408
  Serious: Yes (Other)
  Sender: PFIZER
  Company Number: US-PFIZER INC-PV202400097294

PATIENT
  Age: 80 Year
  Sex: Female
  Weight: 81.64 kg

DRUGS (3)
  1. IBRANCE [Suspect]
     Active Substance: PALBOCICLIB
     Indication: Breast cancer female
     Route: 048
     Dates: end: 20240725
  2. IBRANCE [Suspect]
     Active Substance: PALBOCICLIB
     Route: 048
  3. LETROZOLE [Concomitant]
     Active Substance: LETROZOLE

REACTIONS (12)
  - Leukopenia [Unknown]
  - Wheelchair user [Not Recovered/Not Resolved]
  - Blood chloride increased [Unknown]
  - Blood creatinine increased [Unknown]
  - Blood glucose increased [Unknown]
  - Blood urea increased [Unknown]
  - Carbohydrate antigen 27.29 increased [Unknown]
  - Glomerular filtration rate decreased [Unknown]
  - Lymphocyte count decreased [Unknown]
  - Mean cell volume increased [Unknown]
  - Neutrophil count decreased [Unknown]
  - White blood cell count decreased [Unknown]

NARRATIVE: CASE EVENT DATE: 20240812
